FAERS Safety Report 18420201 (Version 3)
Quarter: 2021Q1

REPORT INFORMATION
  Report Type: Report from Study
  Country: CO (occurrence: CO)
  Receive Date: 20201023
  Receipt Date: 20210203
  Transmission Date: 20210419
  Serious: Yes (Hospitalization, Other)
  Sender: FDA-Public Use
  Company Number: NVSC2020CO260406

PATIENT
  Age: 61 Year
  Sex: Male
  Weight: 82 kg

DRUGS (4)
  1. MEKINIST [Suspect]
     Active Substance: TRAMETINIB DIMETHYL SULFOXIDE
     Indication: BRAF GENE MUTATION
     Dosage: 2 MG, QD (STARTED APPROXIMATELY 5 MONTHS AGO)
     Route: 048
     Dates: end: 20200827
  2. TAFINLAR [Suspect]
     Active Substance: DABRAFENIB MESYLATE
     Indication: BRAF GENE MUTATION
     Dosage: 150 MG, BID (STARTED APPROXIMATELY 5 MONTHS AGO)
     Route: 048
     Dates: end: 20200827
  3. TAFINLAR [Suspect]
     Active Substance: DABRAFENIB MESYLATE
     Indication: NEOPLASM PROPHYLAXIS
     Dosage: 150 MG, Q12H
     Route: 048
     Dates: start: 20200921
  4. MEKINIST [Suspect]
     Active Substance: TRAMETINIB DIMETHYL SULFOXIDE
     Indication: NEOPLASM PROPHYLAXIS
     Dosage: 2 MG, QD
     Route: 048
     Dates: start: 20200921

REACTIONS (9)
  - Neoplasm skin [Unknown]
  - Malaise [Recovered/Resolved]
  - Chills [Recovered/Resolved]
  - Discharge [Unknown]
  - Headache [Recovered/Resolved]
  - Brain neoplasm [Unknown]
  - Bacterial infection [Unknown]
  - Metastases to central nervous system [Unknown]
  - Lymphadenopathy [Unknown]

NARRATIVE: CASE EVENT DATE: 20200827
